FAERS Safety Report 5471936-8 (Version None)
Quarter: 2007Q3

REPORT INFORMATION
  Report Type: 
  Country: None (occurrence: None)
  Receive Date: 20070928
  Receipt Date: 20070917
  Transmission Date: 20080115
  Serious: Yes (Hospitalization, Other)
  Sender: FDA-Public Use
  Company Number: US-AMGEN-US244251

PATIENT
  Age: 53 Year
  Sex: Female

DRUGS (4)
  1. SENSIPAR [Suspect]
     Indication: HYPERPARATHYROIDISM SECONDARY
     Route: 065
  2. TACROLIMUS [Concomitant]
     Route: 065
  3. MYCOPHENOLATE MOFETIL [Concomitant]
     Route: 065
  4. PREDNISONE [Concomitant]
     Route: 065

REACTIONS (5)
  - DIARRHOEA [None]
  - GRAFT DYSFUNCTION [None]
  - HYPERCALCAEMIA [None]
  - NEPHROCALCINOSIS [None]
  - RENAL FAILURE ACUTE [None]
